FAERS Safety Report 4322642-4 (Version None)
Quarter: 2004Q1

REPORT INFORMATION
  Report Type: 
  Country: None (occurrence: None)
  Receive Date: 20040324
  Receipt Date: 20031201
  Transmission Date: 20041129
  Serious: No
  Sender: FDA-Public Use
  Company Number: US-BRISTOL-MYERS SQUIBB COMPANY-12448130

PATIENT
  Age: 47 Year
  Sex: Male
  Weight: 93 kg

DRUGS (11)
  1. REYATAZ [Suspect]
     Indication: HIV INFECTION
     Route: 048
     Dates: start: 20030822
  2. VIREAD [Concomitant]
     Dates: start: 20030822
  3. VIREAD [Concomitant]
     Dates: end: 20030518
  4. VIDEX EC [Concomitant]
     Dates: start: 20030822
  5. VIDEX EC [Concomitant]
     Dates: end: 20030518
  6. NORVIR [Concomitant]
     Dates: start: 20030822
  7. NORVIR [Concomitant]
     Dates: end: 20030318
  8. GRAPE SEED [Concomitant]
     Dates: start: 20020101
  9. FLAXSEED OIL [Concomitant]
     Dates: start: 20010101
  10. THERAGRAN-M ADVANCED [Concomitant]
     Dates: start: 20010101
  11. SAW PALMETTO [Concomitant]
     Dates: start: 20020101

REACTIONS (5)
  - CONSTIPATION [None]
  - JAUNDICE [None]
  - OCULAR ICTERUS [None]
  - PLATELET COUNT DECREASED [None]
  - RECTAL HAEMORRHAGE [None]
